FAERS Safety Report 25238444 (Version 1)
Quarter: 2025Q2

REPORT INFORMATION
  Report Type: Spontaneous
  Country: US (occurrence: None)
  Receive Date: 20250424
  Receipt Date: 20250424
  Transmission Date: 20250716
  Serious: Yes (Other)
  Sender: FDA-CTU
  Company Number: None

PATIENT
  Sex: Female

DRUGS (6)
  1. VIGABATRIN [Suspect]
     Active Substance: VIGABATRIN
     Indication: Epilepsy
     Dates: start: 20241210
  2. VIGABATRIN [Suspect]
     Active Substance: VIGABATRIN
     Indication: Seizure
  3. CLONAZEPAM TAB1MG [Concomitant]
  4. IKEPPRA TAB 1000MG [Concomitant]
  5. TAURINE POW [Concomitant]
  6. VIGABATRIN PAK [Concomitant]

REACTIONS (2)
  - Seizure [None]
  - Drug ineffective [None]
